FAERS Safety Report 8771749 (Version 1)
Quarter: 2012Q4

REPORT INFORMATION
  Report Type: Report from Study
  Country: US (occurrence: US)
  Receive Date: 20120906
  Receipt Date: 20120906
  Transmission Date: 20130627
  Serious: Yes (Hospitalization, Other)
  Sender: FDA-Public Use
  Company Number: US-PURDUE-USA-2012-0092272

PATIENT
  Age: 4 Year
  Sex: Male
  Weight: 24.4 kg

DRUGS (11)
  1. DILAUDID TABLET [Suspect]
     Indication: PRODUCT USED FOR UNKNOWN INDICATION
     Dosage: UNK
     Route: 048
  2. DILAUDID TABLET [Suspect]
     Dosage: UNK
     Dates: start: 20120728
  3. VELCADE [Suspect]
     Indication: B PRECURSOR TYPE ACUTE LEUKAEMIA
     Dosage: UNK
     Route: 030
     Dates: start: 20120703, end: 20120713
  4. VINCRISTINE [Suspect]
     Indication: B PRECURSOR TYPE ACUTE LEUKAEMIA
     Dosage: 1.5 mg/m2, UNK
     Route: 042
     Dates: start: 20120703, end: 20120717
  5. CYTARABINE [Suspect]
     Indication: B PRECURSOR TYPE ACUTE LEUKAEMIA
     Dosage: 70 mg, UNK
     Route: 037
     Dates: start: 20120703, end: 20120703
  6. DOXORUBICIN [Suspect]
     Indication: B PRECURSOR TYPE ACUTE LEUKAEMIA
     Dosage: 60 mg/m2, UNK
     Route: 042
     Dates: start: 20120703, end: 20120703
  7. PREDNISONE [Suspect]
     Indication: B PRECURSOR TYPE ACUTE LEUKAEMIA
     Dosage: 20 UNK, UNK
     Route: 048
     Dates: start: 20120703, end: 20120726
  8. METHOTREXATE [Suspect]
     Indication: B PRECURSOR TYPE ACUTE LEUKAEMIA
     Dosage: 12 mg, UNK
     Route: 037
     Dates: start: 20120703, end: 20120717
  9. METHOTREXATE [Suspect]
     Dosage: UNK
     Dates: end: 20120730
  10. PEGASPARGASE [Suspect]
     Indication: B PRECURSOR TYPE ACUTE LEUKAEMIA
     Dosage: UNK
     Dates: start: 20120703, end: 20120726
  11. AMPHOTERICIN B [Suspect]
     Indication: FUNGAL INFECTION
     Dosage: UNK
     Dates: start: 201207

REACTIONS (3)
  - Depressed level of consciousness [Not Recovered/Not Resolved]
  - Hypoxia [Not Recovered/Not Resolved]
  - Hypokalaemia [Not Recovered/Not Resolved]
